FAERS Safety Report 5221096-3 (Version None)
Quarter: 2007Q1

REPORT INFORMATION
  Report Type: 
  Country: None (occurrence: None)
  Receive Date: 20070124
  Receipt Date: 20070116
  Transmission Date: 20070707
  Serious: Yes (Other)
  Sender: FDA-Public Use
  Company Number: TPA2006A02292

PATIENT
  Age: 59 Year
  Sex: Male
  Weight: 83.1 kg

DRUGS (8)
  1. PIOGLITAZONE HCL [Suspect]
     Indication: GLUCOSE TOLERANCE IMPAIRED
     Dosage: PER ORAL
     Route: 048
     Dates: start: 20041207, end: 20050106
  2. PIOGLITAZONE HCL [Suspect]
     Indication: GLUCOSE TOLERANCE IMPAIRED
     Dosage: PER ORAL
     Route: 048
     Dates: start: 20050107
  3. SIMVASTATIN [Concomitant]
  4. ATENOLOL [Concomitant]
  5. ASPIRIN [Concomitant]
  6. FISH OIL (FISH OIL) [Concomitant]
  7. ASCORBIC ACID [Concomitant]
  8. ZINC (ZINC) [Concomitant]

REACTIONS (3)
  - INTERMITTENT CLAUDICATION [None]
  - MUSCLE SPASMS [None]
  - PAIN IN EXTREMITY [None]
